FAERS Safety Report 19745215 (Version 1)
Quarter: 2021Q3

REPORT INFORMATION
  Report Type: Spontaneous
  Country: US (occurrence: US)
  Receive Date: 20210825
  Receipt Date: 20210825
  Transmission Date: 20211014
  Serious: Yes (Other)
  Sender: FDA-Public Use
  Company Number: US-MICRO LABS LIMITED-ML2021-02111

PATIENT
  Age: 48 Year
  Sex: Female

DRUGS (6)
  1. PHENTERMINE. [Concomitant]
     Active Substance: PHENTERMINE
  2. BUPROPION. [Suspect]
     Active Substance: BUPROPION
     Indication: DEPRESSION
  3. PREDNISONE. [Concomitant]
     Active Substance: PREDNISONE
  4. HYDROXYCHLOROQUINE [Concomitant]
     Active Substance: HYDROXYCHLOROQUINE
  5. QUINACRINE [Concomitant]
     Active Substance: QUINACRINE
  6. COMBINED ORAL CONTRACEPTIVE PILL [Concomitant]
     Route: 048

REACTIONS (1)
  - Subacute cutaneous lupus erythematosus [Recovered/Resolved]
